FAERS Safety Report 8850015 (Version 1)
Quarter: 2012Q4

REPORT INFORMATION
  Report Type: 
  Country: AT (occurrence: AT)
  Receive Date: 20121019
  Receipt Date: 20121019
  Transmission Date: 20130627
  Serious: Yes (Hospitalization)
  Sender: FDA-Public Use
  Company Number: AT-BRISTOL-MYERS SQUIBB COMPANY-17014242

PATIENT
  Age: 47 Year
  Sex: Male

DRUGS (3)
  1. ABILIFY [Suspect]
     Indication: PANIC DISORDER
     Dates: start: 201111, end: 20120203
  2. IXEL [Suspect]
     Indication: PANIC DISORDER
     Dates: start: 201111, end: 20120203
  3. SELOKEN [Concomitant]
     Dates: start: 2007, end: 20120206

REACTIONS (2)
  - Panic disorder [Recovering/Resolving]
  - Condition aggravated [None]
